FAERS Safety Report 7967191-7 (Version None)
Quarter: 2011Q4

REPORT INFORMATION
  Report Type: 
  Country: None (occurrence: None)
  Receive Date: 20111209
  Receipt Date: 20111202
  Transmission Date: 20120403
  Serious: Yes (Other)
  Sender: FDA-Public Use
  Company Number: US-JNJFOC-20111201588

PATIENT
  Sex: Female
  Weight: 61.69 kg

DRUGS (3)
  1. DURAGESIC-100 [Suspect]
     Indication: PAIN
     Route: 062
     Dates: start: 20000101
  2. DURAGESIC-100 [Suspect]
     Route: 062
     Dates: start: 19980101, end: 20000101
  3. DURAGESIC-100 [Suspect]
     Route: 062

REACTIONS (3)
  - PRODUCT QUALITY ISSUE [None]
  - OVERDOSE [None]
  - CONNECTIVE TISSUE DISORDER [None]
